FAERS Safety Report 17511124 (Version 4)
Quarter: 2021Q2

REPORT INFORMATION
  Report Type: Spontaneous
  Country: US (occurrence: US)
  Receive Date: 20200306
  Receipt Date: 20210607
  Transmission Date: 20210716
  Serious: No
  Sender: FDA-Public Use
  Company Number: US-HARMONY BIOSCIENCES-2020HMY00091

PATIENT
  Sex: Female

DRUGS (4)
  1. WAKIX [Suspect]
     Active Substance: PITOLISANT HYDROCHLORIDE
     Dosage: 17.8 MG, 1X/DAY
     Route: 048
  2. WAKIX [Suspect]
     Active Substance: PITOLISANT HYDROCHLORIDE
     Dosage: 17.8 MG, 1X/DAY
     Route: 048
  3. WAKIX [Suspect]
     Active Substance: PITOLISANT HYDROCHLORIDE
     Dosage: 8.9 MG, 1X/DAY
     Route: 048
  4. WAKIX [Suspect]
     Active Substance: PITOLISANT HYDROCHLORIDE
     Dosage: ^NOT TAKING AS PRESCRIBED^
     Route: 048

REACTIONS (7)
  - Dry mouth [Unknown]
  - Intentional product misuse [Unknown]
  - Product dose omission issue [Unknown]
  - Eye pruritus [Unknown]
  - Sneezing [Unknown]
  - Rhinorrhoea [Unknown]
  - Back pain [Unknown]
